FAERS Safety Report 20074282 (Version 1)
Quarter: 2021Q4

REPORT INFORMATION
  Report Type: Spontaneous
  Country: US (occurrence: None)
  Receive Date: 20211115
  Receipt Date: 20211115
  Transmission Date: 20220303
  Serious: Yes (Other)
  Sender: FDA-Public Use
  Company Number: None

PATIENT
  Age: 50 Year
  Sex: Female
  Weight: 59.85 kg

DRUGS (9)
  1. BUPROPION [Suspect]
     Active Substance: BUPROPION
     Indication: Attention deficit hyperactivity disorder
     Route: 048
     Dates: start: 20211030
  2. ENBREL [Concomitant]
     Active Substance: ETANERCEPT
  3. HYDROXYCHLOROQUINE SULFATE [Concomitant]
     Active Substance: HYDROXYCHLOROQUINE SULFATE
  4. ZYRTEC [Concomitant]
     Active Substance: CETIRIZINE HYDROCHLORIDE
  5. PILOCARPINE [Concomitant]
     Active Substance: PILOCARPINE
  6. BREO ELLIPTA [Concomitant]
     Active Substance: FLUTICASONE FUROATE\VILANTEROL TRIFENATATE
  7. FLONASE [Concomitant]
     Active Substance: FLUTICASONE PROPIONATE
  8. HERBALS\TURMERIC [Concomitant]
     Active Substance: HERBALS\TURMERIC
  9. calcium with vit d and minerals [Concomitant]

REACTIONS (6)
  - Yawning [None]
  - Therapy change [None]
  - Dyspnoea [None]
  - Drug intolerance [None]
  - Drug ineffective [None]
  - Eructation [None]

NARRATIVE: CASE EVENT DATE: 20211109
